FAERS Safety Report 22138155 (Version 5)
Quarter: 2023Q2

REPORT INFORMATION
  Report Type: Report from Study
  Country: CA (occurrence: CA)
  Receive Date: 20230325
  Receipt Date: 20230605
  Transmission Date: 20230722
  Serious: Yes (Hospitalization)
  Sender: FDA-Public Use
  Company Number: CA-002147023-NVSC2022CA226069

PATIENT
  Age: 7 Year
  Sex: Female

DRUGS (3)
  1. ILARIS [Suspect]
     Active Substance: CANAKINUMAB
     Indication: Familial mediterranean fever
     Dosage: 35 (UNIT NOT SPECIFIED), Q4W
     Route: 058
     Dates: start: 20221004
  2. ILARIS [Suspect]
     Active Substance: CANAKINUMAB
     Dosage: 35 (UNIT NOT SPECIFIED), Q4W
     Route: 058
     Dates: start: 20230221
  3. COLCHICINE [Suspect]
     Active Substance: COLCHICINE
     Indication: Product used for unknown indication
     Dosage: UNK X 0.6, BID
     Route: 048

REACTIONS (11)
  - Condition aggravated [Unknown]
  - Cystinosis [Recovered/Resolved]
  - Rectal haemorrhage [Recovered/Resolved]
  - Vomiting [Recovered/Resolved]
  - Diarrhoea [Not Recovered/Not Resolved]
  - Viral infection [Unknown]
  - Blood pressure abnormal [Unknown]
  - Agitation [Unknown]
  - Serum amyloid A protein increased [Unknown]
  - Headache [Unknown]
  - Abdominal pain upper [Unknown]

NARRATIVE: CASE EVENT DATE: 20221004
